FAERS Safety Report 13379767 (Version 1)
Quarter: 2017Q1

REPORT INFORMATION
  Report Type: Spontaneous
  Country: FR (occurrence: FR)
  Receive Date: 20170328
  Receipt Date: 20170328
  Transmission Date: 20170429
  Serious: Yes (Life-Threatening, Other)
  Sender: FDA-Public Use
  Company Number: FR-PFIZER INC-2017129711

PATIENT
  Age: 69 Year
  Sex: Female

DRUGS (9)
  1. SUFENTANIL CITRATE. [Suspect]
     Active Substance: SUFENTANIL CITRATE
     Indication: ANAESTHESIA
     Dosage: 15 UG, SINGLE
     Route: 042
     Dates: start: 20150923, end: 20150923
  2. CYMBALTA [Concomitant]
     Active Substance: DULOXETINE HYDROCHLORIDE
  3. NOCTAMIDE [Concomitant]
     Active Substance: LORMETAZEPAM
  4. PROPOFOL. [Suspect]
     Active Substance: PROPOFOL
     Indication: ANAESTHESIA
     Dosage: 200 MG, SINGLE
     Route: 042
     Dates: start: 20150923, end: 20150923
  5. ATRACURIUM BESILATE [Suspect]
     Active Substance: ATRACURIUM BESYLATE
     Indication: ANAESTHESIA
     Dosage: 35 MG, SINGLE
     Route: 042
     Dates: start: 20150923, end: 20150923
  6. ADRENALINE RENAUDIN [Suspect]
     Active Substance: EPINEPHRINE BITARTRATE
     Dosage: UNK
     Route: 041
     Dates: start: 20150923, end: 20150923
  7. FENOFIBRATE. [Concomitant]
     Active Substance: FENOFIBRATE
  8. PERINDOPRIL [Concomitant]
     Active Substance: PERINDOPRIL
  9. CEFAZOLINE PANPHARMA [Suspect]
     Active Substance: CEFAZOLIN SODIUM
     Indication: ANTIBIOTIC THERAPY
     Dosage: 2 G, SINGLE
     Route: 042
     Dates: start: 20150923, end: 20150923

REACTIONS (6)
  - Cardio-respiratory arrest [Recovered/Resolved]
  - Stress cardiomyopathy [Recovered/Resolved]
  - Ventricular tachycardia [Recovered/Resolved]
  - Hypertension [Recovered/Resolved]
  - Troponin increased [Recovered/Resolved]
  - Ejection fraction decreased [Recovered/Resolved]

NARRATIVE: CASE EVENT DATE: 20150923
